FAERS Safety Report 6672793-4 (Version None)
Quarter: 2010Q2

REPORT INFORMATION
  Report Type: 
  Country: None (occurrence: None)
  Receive Date: 20100408
  Receipt Date: 20100405
  Transmission Date: 20101027
  Serious: Yes (Other)
  Sender: FDA-Public Use
  Company Number: US-BAYER-201013042BCC

PATIENT
  Age: 14 Year
  Sex: Male
  Weight: 81 kg

DRUGS (1)
  1. MILK OF MAGNESIA TAB [Suspect]
     Indication: DYSPEPSIA
     Dosage: DOSE: 4 TABLESPOONS
     Route: 048
     Dates: start: 20100301

REACTIONS (2)
  - DIARRHOEA [None]
  - DIARRHOEA HAEMORRHAGIC [None]
